FAERS Safety Report 4646113-0 (Version None)
Quarter: 2005Q2

REPORT INFORMATION
  Report Type: 
  Country: None (occurrence: None)
  Receive Date: 20050427
  Receipt Date: 20040505
  Transmission Date: 20051028
  Serious: No
  Sender: FDA-Public Use
  Company Number: US-GLAXOSMITHKLINE-A0509662A

PATIENT
  Sex: Female

DRUGS (3)
  1. ZOFRAN [Suspect]
     Indication: ILL-DEFINED DISORDER
     Dosage: 4MG AS REQUIRED
     Route: 048
     Dates: start: 20040306
  2. AZITHROMYCIN [Concomitant]
  3. ORAL CONTRACEPTIVE [Concomitant]

REACTIONS (1)
  - PALPITATIONS [None]
